FAERS Safety Report 8835846 (Version 1)
Quarter: 2012Q4

REPORT INFORMATION
  Report Type: 
  Country: DE (occurrence: DE)
  Receive Date: 20121011
  Receipt Date: 20121011
  Transmission Date: 20130627
  Serious: Yes (Hospitalization)
  Sender: FDA-Public Use
  Company Number: DE-GLAXOSMITHKLINE-D0077198A

PATIENT
  Sex: Female

DRUGS (2)
  1. ELONTRIL [Suspect]
     Route: 048
     Dates: start: 201205
  2. L-THYROXIN [Concomitant]
     Dosage: 25UG Unknown
     Route: 048

REACTIONS (16)
  - Tinnitus [Not Recovered/Not Resolved]
  - Hyperhidrosis [Recovered/Resolved]
  - Pollakiuria [Not Recovered/Not Resolved]
  - Nocturia [Not Recovered/Not Resolved]
  - Muscle spasms [Recovered/Resolved]
  - Hypertonia [Not Recovered/Not Resolved]
  - Arrhythmia [Recovered/Resolved]
  - Parosmia [Not Recovered/Not Resolved]
  - Thirst decreased [Not Recovered/Not Resolved]
  - Visual acuity reduced [Not Recovered/Not Resolved]
  - Alopecia [Recovered/Resolved]
  - Aggression [Not Recovered/Not Resolved]
  - Anger [Not Recovered/Not Resolved]
  - Constipation [Unknown]
  - Constipation [Not Recovered/Not Resolved]
  - Depression [Recovered/Resolved]
